FAERS Safety Report 8666250 (Version 6)
Quarter: 2013Q1

REPORT INFORMATION
  Report Type: Spontaneous
  Country: FR (occurrence: FR)
  Receive Date: 20120716
  Receipt Date: 20130201
  Transmission Date: 20140127
  Serious: Yes (Death, Life-Threatening, Hospitalization, Other)
  Sender: FDA-Public Use
  Company Number: PHHY2012FR059417

PATIENT
  Age: 15 Year
  Sex: Female

DRUGS (18)
  1. NEORAL [Suspect]
     Dosage: 1 DF, BID
     Dates: start: 20120423
  2. CIPROFLOXACIN [Suspect]
     Dates: start: 20120528, end: 20120606
  3. BACTRIM [Suspect]
     Indication: PROPHYLAXIS
     Dosage: 1 DF, QW3
     Route: 042
     Dates: start: 20120428
  4. ATGAM [Suspect]
     Dosage: 40 MG/KG, UNK
     Dates: start: 20120423
  5. ATGAM [Suspect]
     Dosage: 40 MG/KG, UNK
     Dates: start: 20120425, end: 20120427
  6. VFEND [Interacting]
     Indication: BRONCHOPULMONARY ASPERGILLOSIS
     Dosage: 1 DF, BID
     Dates: start: 20120514, end: 20120531
  7. VFEND [Interacting]
     Dosage: 1 DF, UNK
     Route: 048
     Dates: start: 20120514
  8. GENTAMICIN PANPHARMA [Interacting]
  9. VANCOMYCIN MYLAN [Interacting]
     Dosage: 1 G, BID
     Dates: start: 20120522
  10. VANCOMYCIN MYLAN [Interacting]
     Dosage: 2000 MG, UNK
     Dates: start: 20120525
  11. VANCOMYCIN MYLAN [Interacting]
     Dosage: 2250 MG, UNK
     Dates: start: 20120531
  12. VANCOMYCIN MYLAN [Interacting]
     Dosage: 2000 MG, UNK
     Dates: start: 20120604
  13. VANCOMYCIN MYLAN [Interacting]
     Dosage: 1800 MG, UNK
     Dates: start: 20120606
  14. CLAVENTIN [Suspect]
     Dosage: 1 DF, TID
     Dates: start: 20120528, end: 20120601
  15. CLAVENTIN [Suspect]
     Dates: start: 20120604
  16. CANCIDAS [Suspect]
     Route: 042
     Dates: start: 20120528, end: 20120530
  17. NEUPOGEN [Concomitant]
     Indication: ASPERGILLUS INFECTION
     Dates: start: 201204, end: 20120607
  18. COLISTIN [Concomitant]
     Dosage: 1700 IU, UNK

REACTIONS (13)
  - Renal failure acute [Fatal]
  - Bronchopulmonary aspergillosis [Fatal]
  - Aspergillus infection [Fatal]
  - No therapeutic response [Fatal]
  - Bone marrow failure [Fatal]
  - Generalised oedema [Fatal]
  - Renal impairment [Fatal]
  - Respiratory distress [Fatal]
  - Hepatic failure [Unknown]
  - Hypersensitivity [Unknown]
  - Drug interaction [Unknown]
  - Overdose [Unknown]
  - Immunosuppressant drug level decreased [Unknown]
